FAERS Safety Report 26072846 (Version 1)
Quarter: 2025Q4

REPORT INFORMATION
  Report Type: Spontaneous
  Country: EU (occurrence: EU)
  Receive Date: 20251121
  Receipt Date: 20251121
  Transmission Date: 20260118
  Serious: Yes (Hospitalization, Disabling, Other)
  Sender: ACCORD
  Company Number: None

PATIENT
  Age: 44 Year
  Sex: Female

DRUGS (1)
  1. FLUOROURACIL [Suspect]
     Active Substance: FLUOROURACIL
     Indication: Prophylactic chemotherapy
     Dosage: FIRST TREATMENT: BOLUS WITH 832 MG AT 01NOV2019 AND 4992 MG ON A PUMP DURING 46 HOURS.
     Dates: start: 20191101, end: 20191211

REACTIONS (3)
  - Cardiac arrest [Recovered/Resolved]
  - Brain injury [Not Recovered/Not Resolved]
  - Cardiac failure [Unknown]

NARRATIVE: CASE EVENT DATE: 20191211
